FAERS Safety Report 6669721-4 (Version None)
Quarter: 2010Q2

REPORT INFORMATION
  Report Type: 
  Country: None (occurrence: None)
  Receive Date: 20100402
  Receipt Date: 20100319
  Transmission Date: 20101027
  Serious: Yes (Hospitalization)
  Sender: FDA-Public Use
  Company Number: TCI2010A00976

PATIENT
  Age: 55 Year
  Sex: Male

DRUGS (5)
  1. ACTOS [Suspect]
     Indication: TYPE 2 DIABETES MELLITUS
     Dosage: 30 MG (30 MG, 1 IN 1 D), PER ORAL
     Route: 048
     Dates: start: 20071022, end: 20100305
  2. LANSORAL (LANSOPRAZOLE) [Concomitant]
  3. OMEPRAZOLE [Concomitant]
  4. PLETAL [Concomitant]
  5. ALLOPURINOL [Concomitant]

REACTIONS (8)
  - ABDOMINAL DISCOMFORT [None]
  - DECREASED APPETITE [None]
  - GASTRIC CANCER [None]
  - LYMPHADENOPATHY [None]
  - MALIGNANT ASCITES [None]
  - METASTASES TO PERITONEUM [None]
  - PYLORIC STENOSIS [None]
  - REFLUX OESOPHAGITIS [None]
